FAERS Safety Report 7037301-7 (Version None)
Quarter: 2010Q4

REPORT INFORMATION
  Report Type: 
  Country: None (occurrence: None)
  Receive Date: 20101011
  Receipt Date: 20100929
  Transmission Date: 20110411
  Serious: Yes (Death, Hospitalization)
  Sender: FDA-Public Use
  Company Number: GB-MILLENNIUM PHARMACEUTICALS, INC.-2010-03697

PATIENT

DRUGS (11)
  1. VINCRISTINE [Suspect]
     Indication: MANTLE CELL LYMPHOMA
     Dosage: 2 MG, CYCLIC
     Route: 042
     Dates: start: 20100114
  2. CYCLOPHOSPHAMIDE [Suspect]
     Indication: MANTLE CELL LYMPHOMA
     Dosage: 1400 MG, CYCLIC
     Route: 042
     Dates: start: 20100114
  3. CYCLOPHOSPHAMIDE [Suspect]
     Dosage: 700 MG, CYCLIC
     Route: 042
     Dates: start: 20100203
  4. DOXORUBICIN [Suspect]
     Indication: MANTLE CELL LYMPHOMA
     Dosage: 120 MG, CYCLIC
     Route: 042
     Dates: start: 20100114
  5. DOXORUBICIN [Suspect]
     Dosage: 46 UNK, UNK
     Route: 042
     Dates: start: 20100203
  6. PREDNISONE [Suspect]
     Indication: MANTLE CELL LYMPHOMA
     Dosage: 100 MG, CYCLIC
     Route: 048
     Dates: start: 20100114
  7. BIMATOPROST AND TIMOLOL MALEATE [Concomitant]
     Indication: GLAUCOMA
     Dosage: UNK
     Route: 047
     Dates: start: 20090430
  8. FLUCONAZOLE [Concomitant]
     Indication: ANTIFUNGAL PROPHYLAXIS
     Dosage: 50 MG, UNK
     Dates: start: 20100114, end: 20100224
  9. METOCLOPRAMIDE [Concomitant]
     Indication: NAUSEA
     Dosage: UNK
     Route: 048
     Dates: start: 20100114
  10. ACYCLOVIR [Concomitant]
     Indication: ANTIVIRAL PROPHYLAXIS
     Dosage: 200 MG, TID
     Dates: start: 20100114, end: 20100124
  11. PREDNISOLONE [Concomitant]
     Indication: DECREASED APPETITE
     Dosage: 40 MG, QD
     Route: 048
     Dates: start: 20100222, end: 20100319

REACTIONS (3)
  - DISEASE PROGRESSION [None]
  - ESCHERICHIA INFECTION [None]
  - NEUTROPENIA [None]
